FAERS Safety Report 7321839-9 (Version None)
Quarter: 2011Q1

REPORT INFORMATION
  Report Type: 
  Country: None (occurrence: None)
  Receive Date: 20110228
  Receipt Date: 20110222
  Transmission Date: 20110831
  Serious: Yes (Hospitalization)
  Sender: FDA-Public Use
  Company Number: GB-PFIZER INC-2010137202

PATIENT
  Age: 24 Year
  Sex: Male

DRUGS (17)
  1. CLOZARIL [Suspect]
     Dosage: UNK
     Dates: start: 20101008
  2. LACTULOSE [Concomitant]
     Route: 048
  3. PARACETAMOL [Suspect]
     Dosage: UNK
     Route: 048
  4. NICOTINE [Concomitant]
     Route: 062
  5. TRUVADA [Concomitant]
     Dosage: UNK
     Dates: start: 20100101
  6. CLOZARIL [Suspect]
     Dosage: UNK
     Dates: start: 20101011
  7. PRIADEL [Suspect]
     Indication: PERSONALITY DISORDER
     Dosage: UNK
     Route: 048
  8. KALETRA [Concomitant]
     Dosage: UNK
     Dates: start: 20100101
  9. NICOTINE POLACRILEX [Concomitant]
  10. IBUPROFEN [Suspect]
     Dosage: UNK
     Route: 048
  11. CLOZARIL [Suspect]
     Indication: SCHIZOPHRENIA
     Dosage: 250 MG, 2X/DAY
     Route: 048
     Dates: start: 20100429
  12. ALCOHOL [Suspect]
     Dosage: UNK
  13. MIRTAZAPINE [Suspect]
     Indication: DISSOCIATIVE IDENTITY DISORDER
     Dosage: UNK
     Route: 048
     Dates: start: 20101008
  14. LITHIUM [Suspect]
     Indication: DISSOCIATIVE IDENTITY DISORDER
     Dosage: UNK
     Dates: start: 20101008
  15. HYOSCINE HYDROBROMIDE [Concomitant]
     Route: 048
  16. NIQUITIN [Concomitant]
     Indication: SMOKING CESSATION THERAPY
     Route: 062
  17. PANADOL [Suspect]
     Dosage: UNK MG, UNK
     Route: 048

REACTIONS (2)
  - SUICIDE ATTEMPT [None]
  - INTENTIONAL OVERDOSE [None]
